FAERS Safety Report 7744050-6 (Version None)
Quarter: 2011Q3

REPORT INFORMATION
  Report Type: 
  Country: None (occurrence: None)
  Receive Date: 20110912
  Receipt Date: 20110902
  Transmission Date: 20111222
  Serious: Yes (Hospitalization)
  Sender: FDA-Public Use
  Company Number: CA-BRISTOL-MYERS SQUIBB COMPANY-16047987

PATIENT
  Age: 66 Year
  Sex: Male
  Weight: 88 kg

DRUGS (6)
  1. MINOCYCLINE HCL [Concomitant]
     Indication: RASH
     Dates: start: 20110822
  2. CISPLATIN [Suspect]
     Indication: HEAD AND NECK CANCER
     Dosage: 08-08AUG2011.LAST DOSE ON 12AUG2011
     Route: 042
     Dates: start: 20110808, end: 20110812
  3. FLUOROURACIL [Suspect]
     Indication: HEAD AND NECK CANCER
     Dosage: LAST DOSE ON 12AUG2011
     Route: 042
     Dates: start: 20110809
  4. CENTRUM [Concomitant]
     Indication: SUPPLEMENTATION THERAPY
     Dates: start: 20060101
  5. ERBITUX [Suspect]
     Indication: HEAD AND NECK CANCER
     Dosage: 08-08AUG2011,29AUG2011-ONG(250MG/M2)WEEKLY ON DAYS 1,8+15
     Route: 042
     Dates: start: 20110808
  6. ASPIRIN [Concomitant]
     Indication: PROPHYLAXIS
     Dates: start: 20060101

REACTIONS (2)
  - ANAEMIA [None]
  - UPPER GASTROINTESTINAL HAEMORRHAGE [None]
